FAERS Safety Report 20551038 (Version 1)
Quarter: 2022Q1

REPORT INFORMATION
  Report Type: Spontaneous
  Country: US (occurrence: US)
  Receive Date: 20220304
  Receipt Date: 20220304
  Transmission Date: 20220423
  Serious: Yes (Other)
  Sender: FDA-Public Use
  Company Number: US-LUPIN PHARMACEUTICALS INC.-2022-03034

PATIENT
  Age: 11 Year
  Sex: Female

DRUGS (5)
  1. LEVETIRACETAM [Suspect]
     Active Substance: LEVETIRACETAM
     Indication: Encephalopathy
     Dosage: UNK
     Route: 065
  2. IFOSFAMIDE [Concomitant]
     Active Substance: IFOSFAMIDE
     Indication: Nongerminomatous germ cell tumour of the CNS
     Dosage: 1800 MILLIGRAM/SQ. METER, QD-RECEIVED 6 CYCLES OF INDUCTION CHEMOTHERAPY (ALTERNATING CYCLES OF CARB
     Route: 065
  3. CARBOPLATIN [Concomitant]
     Active Substance: CARBOPLATIN
     Indication: Nongerminomatous germ cell tumour of the CNS
     Dosage: UNK RECEIVED 6 CYCLES OF INDUCTION CHEMOTHERAPY (ALTERNATING CYCLES OF CARBOPLATIN/ETOPOSIDE AND IFO
     Route: 065
  4. ETOPOSIDE [Concomitant]
     Active Substance: ETOPOSIDE
     Indication: Nongerminomatous germ cell tumour of the CNS
     Dosage: UNK-RECEIVED 6 CYCLES OF INDUCTION CHEMOTHERAPY (ALTERNATING CYCLES OF CARBOPLATIN/ETOPOSIDE AND IFO
     Route: 065
  5. APREPITANT [Concomitant]
     Active Substance: APREPITANT
     Indication: Antiemetic supportive care
     Dosage: UNK
     Route: 065

REACTIONS (2)
  - Drug ineffective for unapproved indication [Unknown]
  - Off label use [Unknown]
